FAERS Safety Report 11333158 (Version 1)
Quarter: 2015Q3

REPORT INFORMATION
  Report Type: Spontaneous
  Country: US (occurrence: US)
  Receive Date: 20150803
  Receipt Date: 20150803
  Transmission Date: 20151125
  Serious: No
  Sender: FDA-Public Use
  Company Number: US-ELI_LILLY_AND_COMPANY-US200711000156

PATIENT
  Age: 35 Year
  Sex: Female

DRUGS (6)
  1. HUMAN GROWTH HORMONE [Concomitant]
  2. LAMICTAL [Concomitant]
     Active Substance: LAMOTRIGINE
  3. CLONAZEPAM. [Concomitant]
     Active Substance: CLONAZEPAM
  4. ZOCOR [Concomitant]
     Active Substance: SIMVASTATIN
  5. AMBIEN [Concomitant]
     Active Substance: ZOLPIDEM TARTRATE
  6. ZYPREXA [Suspect]
     Active Substance: OLANZAPINE
     Indication: BIPOLAR DISORDER
     Dosage: 45 MG, UNK
     Dates: start: 200706

REACTIONS (2)
  - Blood glucose increased [Unknown]
  - Prescribed overdose [Not Recovered/Not Resolved]

NARRATIVE: CASE EVENT DATE: 200706
